FAERS Safety Report 21339459 (Version 1)
Quarter: 2022Q3

REPORT INFORMATION
  Report Type: Spontaneous
  Country: US (occurrence: US)
  Receive Date: 20220915
  Receipt Date: 20220915
  Transmission Date: 20221027
  Serious: No
  Sender: FDA-Public Use
  Company Number: US-SA-SAC20220909000221

PATIENT
  Sex: Male
  Weight: 20.5 kg

DRUGS (1)
  1. DUPIXENT [Suspect]
     Active Substance: DUPILUMAB
     Dosage: FREQUENCY: OTHER STRENGTH: 300 MG/2 ML
     Route: 058
     Dates: start: 202206

REACTIONS (3)
  - Injection site vesicles [Unknown]
  - Screaming [Unknown]
  - Injection site pain [Unknown]

NARRATIVE: CASE EVENT DATE: 20220621
